FAERS Safety Report 6701733-4 (Version None)
Quarter: 2010Q2

REPORT INFORMATION
  Report Type: 
  Country: None (occurrence: None)
  Receive Date: 20100429
  Receipt Date: 20100420
  Transmission Date: 20101027
  Serious: Yes (Hospitalization)
  Sender: FDA-Public Use
  Company Number: PHHY2010LB25155

PATIENT
  Age: 60 Year
  Sex: Female

DRUGS (1)
  1. ACLASTA [Suspect]
     Indication: OSTEOPOROSIS POSTMENOPAUSAL
     Dosage: 5 MG YEARLY
     Dates: start: 20100410

REACTIONS (4)
  - BLOOD CREATININE INCREASED [None]
  - HYPOTENSION [None]
  - RENAL FAILURE [None]
  - TACHYCARDIA [None]
